FAERS Safety Report 12833370 (Version 1)
Quarter: 2016Q4

REPORT INFORMATION
  Report Type: Spontaneous
  Country: GB (occurrence: GB)
  Receive Date: 20161010
  Receipt Date: 20161010
  Transmission Date: 20170207
  Serious: Yes (Hospitalization)
  Sender: FDA-Public Use
  Company Number: GB-JNJFOC-20161002798

PATIENT
  Age: 81 Year
  Sex: Male

DRUGS (4)
  1. IBRUTINIB [Suspect]
     Active Substance: IBRUTINIB
     Indication: CHRONIC LYMPHOCYTIC LEUKAEMIA
     Dosage: DOSE: 420 (UNITS AND FREQUENCY UNSPECIFIED)
     Route: 048
     Dates: start: 20160908, end: 20160914
  2. ASPIRIN. [Concomitant]
     Active Substance: ASPIRIN
     Dosage: 75 (UNSPECIFIED UNITS) ONCE A DAY
     Route: 065
  3. FRUSEMIDE [Concomitant]
     Active Substance: FUROSEMIDE
     Indication: OEDEMA
     Dosage: 80 (UNITS UNSPECIFIED) 2 DOSES PER DAY
     Route: 065
  4. LIPITOR [Concomitant]
     Active Substance: ATORVASTATIN CALCIUM
     Dosage: 40 (UNITS UNSPECIFIED) ONCE AT NIGHT
     Route: 065

REACTIONS (1)
  - Left ventricular dysfunction [Recovering/Resolving]

NARRATIVE: CASE EVENT DATE: 20160911
